FAERS Safety Report 7534326-X (Version None)
Quarter: 2011Q2

REPORT INFORMATION
  Report Type: 
  Country: None (occurrence: None)
  Receive Date: 20110608
  Receipt Date: 20110531
  Transmission Date: 20111010
  Serious: Yes (Hospitalization)
  Sender: FDA-Public Use
  Company Number: US-AMGEN-KDC429019

PATIENT
  Age: 76 Year
  Sex: Male
  Weight: 113.64 kg

DRUGS (38)
  1. LEVEMIR [Concomitant]
     Indication: DIABETES MELLITUS
     Dosage: UNK
     Route: 058
     Dates: start: 20100518, end: 20100621
  2. SENNA-MINT WAF [Concomitant]
     Indication: CONSTIPATION
     Dosage: 8.6 MG, UNK
     Route: 048
     Dates: start: 20100715, end: 20101012
  3. DOCUSATE [Concomitant]
     Route: 048
     Dates: start: 20100715
  4. OMEPRAZOLE [Concomitant]
     Dosage: 40 MG, UNK
     Route: 048
     Dates: start: 20100519, end: 20100730
  5. METOPROLOL [Concomitant]
     Indication: EXTRASYSTOLES
     Dosage: UNK MG, UNK
     Dates: start: 20100708
  6. LASIX [Concomitant]
     Dosage: 40 MG, UNK
     Dates: start: 20100411, end: 20100826
  7. METFORMIN HCL [Concomitant]
     Indication: DIABETES MELLITUS
     Dosage: 500 MG, BID
     Route: 048
     Dates: start: 20100320
  8. AUGMENTIN '125' [Concomitant]
     Route: 048
     Dates: start: 20100524, end: 20100606
  9. DENOSUMAB [Suspect]
     Indication: PROSTATE CANCER
     Dosage: 60 MG, Q6MO
     Route: 058
     Dates: start: 20091013, end: 20100504
  10. LANTUS [Concomitant]
     Indication: DIABETES MELLITUS
     Dosage: UNK
     Route: 058
     Dates: start: 20100406, end: 20100808
  11. MUCINEX [Concomitant]
     Route: 048
     Dates: start: 20100412, end: 20100621
  12. DURICEF [Concomitant]
     Route: 048
     Dates: start: 20100515, end: 20100519
  13. LISINOPRIL [Concomitant]
     Indication: HYPERTENSION
     Dosage: 10 MG, UNK
     Route: 048
     Dates: start: 20100413, end: 20100714
  14. PREDNISONE [Concomitant]
     Indication: CHRONIC OBSTRUCTIVE PULMONARY DISEASE
  15. LOVENOX [Concomitant]
     Route: 058
     Dates: start: 20100624, end: 20100625
  16. HYDROCODONE BITARTRATE AND ACETAMINOPHEN [Concomitant]
     Dosage: UNK
     Route: 048
     Dates: start: 20100715, end: 20100722
  17. NOVOLIN R [Concomitant]
     Indication: DIABETES MELLITUS
     Route: 058
     Dates: start: 20100626, end: 20100715
  18. ALBUTEROL SULFATE AUTOHALER [Concomitant]
     Indication: CHRONIC OBSTRUCTIVE PULMONARY DISEASE
     Route: 055
     Dates: start: 20100413, end: 20100503
  19. LEVAQUIN [Concomitant]
     Route: 048
     Dates: start: 20100429, end: 20100505
  20. BACTROBAN [Concomitant]
     Dosage: UNK
     Route: 050
     Dates: start: 20100520, end: 20100523
  21. NEUTRA-PHOS [Concomitant]
     Route: 048
     Dates: start: 20100622, end: 20100723
  22. ASPIRIN [Concomitant]
     Dosage: UNK
     Route: 048
     Dates: start: 20100715, end: 20100901
  23. HEPARIN [Concomitant]
     Indication: THROMBOSIS
     Dates: start: 20100518, end: 20100723
  24. SPIRIVA [Concomitant]
     Route: 055
     Dates: start: 20100323
  25. PREDNISONE [Concomitant]
     Indication: DYSPNOEA
     Route: 048
     Dates: start: 20100501, end: 20100714
  26. UNASYN [Concomitant]
     Route: 042
     Dates: start: 20100519, end: 20100523
  27. WARFARIN SODIUM [Concomitant]
     Indication: THROMBOSIS
     Dosage: UNK
     Route: 048
     Dates: start: 20100519, end: 20100730
  28. PANTOPRAZOLE [Concomitant]
     Route: 048
     Dates: start: 20100622, end: 20100723
  29. MORPHINE [Concomitant]
     Route: 042
     Dates: start: 20100621, end: 20100626
  30. NYSTATIN [Concomitant]
     Dosage: UNK
     Route: 061
     Dates: start: 20100722, end: 20100723
  31. CEPACOL [Concomitant]
     Indication: OROPHARYNGEAL PAIN
     Dosage: UNK
     Route: 048
     Dates: start: 20100709, end: 20100710
  32. VENTOLIN HFA [Concomitant]
     Indication: DYSPNOEA
     Dosage: UNK
     Route: 055
     Dates: start: 20100515
  33. LIPITOR [Concomitant]
     Indication: HIGH DENSITY LIPOPROTEIN DECREASED
     Route: 048
     Dates: start: 20100408, end: 20100626
  34. VERAPAMIL [Concomitant]
     Dosage: UNK UNK, UNK
     Route: 048
  35. SIMVASTATIN [Concomitant]
     Indication: HIGH DENSITY LIPOPROTEIN DECREASED
     Dosage: 10 MG, UNK
     Route: 048
     Dates: start: 20100724
  36. DILAUDID [Concomitant]
     Route: 042
     Dates: start: 20100714, end: 20100715
  37. FLUTICASONE/SALMETEROL [Concomitant]
     Dosage: UNK UNK, BID
     Route: 055
     Dates: start: 20090501
  38. DONEPEZIL HYDROCHLORIDE [Concomitant]
     Dosage: UNK UNK, UNK
     Route: 048

REACTIONS (2)
  - POSTOPERATIVE WOUND COMPLICATION [None]
  - CELLULITIS [None]
